FAERS Safety Report 24361794 (Version 1)
Quarter: 2024Q3

REPORT INFORMATION
  Report Type: Spontaneous
  Country: PT (occurrence: PT)
  Receive Date: 20240925
  Receipt Date: 20240925
  Transmission Date: 20241017
  Serious: Yes (Other)
  Sender: AUROBINDO
  Company Number: PT-INFARMED-B202409-158

PATIENT
  Age: 24 Year
  Sex: Male

DRUGS (1)
  1. CEFUROXIME [Suspect]
     Active Substance: CEFUROXIME
     Indication: Tooth abscess
     Dosage: 500 MILLIGRAM, TWO TIMES A DAY(1 TABLET EVERY 12 HOURS)
     Route: 048
     Dates: start: 20210512, end: 20210514

REACTIONS (4)
  - Cold sweat [Recovered/Resolved]
  - Dizziness [Recovered/Resolved]
  - Fatigue [Recovered/Resolved]
  - Chills [Recovered/Resolved]

NARRATIVE: CASE EVENT DATE: 20210514
